FAERS Safety Report 15270740 (Version 1)
Quarter: 2018Q3

REPORT INFORMATION
  Report Type: Spontaneous
  Country: US (occurrence: US)
  Receive Date: 20180726
  Receipt Date: 20180726
  Transmission Date: 20181010
  Serious: No
  Sender: FDA-Public Use
  Company Number: None

PATIENT
  Age: 89 Year
  Sex: Female

DRUGS (1)
  1. CAPECITABINE. [Suspect]
     Active Substance: CAPECITABINE
     Indication: BREAST CANCER
     Route: 048
     Dates: start: 20180606, end: 20180710

REACTIONS (4)
  - Vomiting [None]
  - Asthenia [None]
  - Haemoglobin decreased [None]
  - Full blood count decreased [None]

NARRATIVE: CASE EVENT DATE: 20180710
